FAERS Safety Report 17352207 (Version 1)
Quarter: 2020Q1

REPORT INFORMATION
  Report Type: Spontaneous
  Country: US (occurrence: US)
  Receive Date: 20200130
  Receipt Date: 20200130
  Transmission Date: 20200409
  Serious: Yes (Hospitalization, Other)
  Sender: FDA-Public Use
  Company Number: US-NOVOPROD-709078

PATIENT
  Age: 58 Year
  Sex: Female

DRUGS (2)
  1. VICTOZA [Suspect]
     Active Substance: LIRAGLUTIDE
     Indication: TYPE 2 DIABETES MELLITUS
     Route: 058
  2. JARDIANCE [Suspect]
     Active Substance: EMPAGLIFLOZIN
     Indication: TYPE 2 DIABETES MELLITUS
     Dosage: 25 MG, QD
     Route: 048
     Dates: start: 201509, end: 201806

REACTIONS (19)
  - Pain in extremity [Not Recovered/Not Resolved]
  - Dizziness [Recovered/Resolved]
  - Inner ear disorder [Not Recovered/Not Resolved]
  - Feeling abnormal [Recovered/Resolved]
  - Hip fracture [Recovered/Resolved]
  - Pain in extremity [Recovered/Resolved]
  - Neuropathy peripheral [Not Recovered/Not Resolved]
  - Dizziness [Recovered/Resolved]
  - Parathyroid disorder [Unknown]
  - Cataract [Recovered/Resolved]
  - Cystitis [Recovered/Resolved]
  - Asthenia [Not Recovered/Not Resolved]
  - Cardiac disorder [Unknown]
  - Dehydration [Recovered/Resolved]
  - Fatigue [Not Recovered/Not Resolved]
  - Thyroid mass [Unknown]
  - Dehydration [Unknown]
  - Fall [Recovered/Resolved]
  - Dizziness [Not Recovered/Not Resolved]

NARRATIVE: CASE EVENT DATE: 2015
